FAERS Safety Report 22259374 (Version 2)
Quarter: 2023Q2

REPORT INFORMATION
  Report Type: Spontaneous
  Country: US (occurrence: US)
  Receive Date: 20230427
  Receipt Date: 20230427
  Transmission Date: 20230722
  Serious: Yes (Other)
  Sender: FDA-Public Use
  Company Number: US-MLMSERVICE-20230403-4201680-1

PATIENT
  Sex: Female

DRUGS (5)
  1. ESTRADIOL [Suspect]
     Active Substance: ESTRADIOL
     Indication: Ovarian failure
     Dosage: UNK
  2. NORETHINDRONE ACETATE [Concomitant]
     Active Substance: NORETHINDRONE ACETATE
     Indication: Ovarian failure
     Dosage: UNK
  3. NORETHINDRONE ACETATE [Concomitant]
     Active Substance: NORETHINDRONE ACETATE
     Dosage: FREQ:12 H
  4. PROGESTERONE [Concomitant]
     Active Substance: PROGESTERONE
     Indication: Turner^s syndrome
     Dosage: UNK
  5. LEVONORGESTREL [Concomitant]
     Active Substance: LEVONORGESTREL
     Indication: Dysmenorrhoea
     Dosage: UNK (INTRAUTERINE DELIVERY SYSTEM)
     Route: 015

REACTIONS (2)
  - Pelvic pain [Unknown]
  - Condition aggravated [Unknown]
